FAERS Safety Report 12589735 (Version 3)
Quarter: 2016Q4

REPORT INFORMATION
  Report Type: Spontaneous
  Country: FR (occurrence: FR)
  Receive Date: 20160725
  Receipt Date: 20161004
  Transmission Date: 20170207
  Serious: Yes (Death, Hospitalization, Other)
  Sender: FDA-Public Use
  Company Number: FR-PFIZER INC-2016248391

PATIENT
  Age: 65 Year
  Sex: Female

DRUGS (1)
  1. METHOTREXATE SODIUM. [Suspect]
     Active Substance: METHOTREXATE SODIUM
     Indication: RHEUMATOID ARTHRITIS
     Dosage: 15 MG, WEEKLY

REACTIONS (6)
  - Circulatory collapse [Unknown]
  - Hyperlactacidaemia [Unknown]
  - Histoplasmosis disseminated [Fatal]
  - Interstitial lung disease [Unknown]
  - Multiple organ dysfunction syndrome [Fatal]
  - Systemic inflammatory response syndrome [Unknown]
